FAERS Safety Report 15368498 (Version 1)
Quarter: 2018Q3

REPORT INFORMATION
  Report Type: Spontaneous
  Country: CA (occurrence: CA)
  Receive Date: 20180910
  Receipt Date: 20180910
  Transmission Date: 20181010
  Serious: Yes (Other)
  Sender: FDA-Public Use
  Company Number: CA-SA-2018SA242827

PATIENT

DRUGS (1)
  1. LANTUS [Suspect]
     Active Substance: INSULIN GLARGINE
     Indication: PRODUCT USED FOR UNKNOWN INDICATION
     Dosage: 70 IU, QD
     Route: 065

REACTIONS (3)
  - Skin infection [Unknown]
  - Neuropathy peripheral [Unknown]
  - Diabetes mellitus [Unknown]
